FAERS Safety Report 10157574 (Version 1)
Quarter: 2014Q2

REPORT INFORMATION
  Report Type: Spontaneous
  Country: FR (occurrence: FR)
  Receive Date: 20140507
  Receipt Date: 20140507
  Transmission Date: 20141212
  Serious: Yes (Life-Threatening, Hospitalization)
  Sender: FDA-Public Use
  Company Number: FR-PFIZER INC-2014123914

PATIENT
  Age: 76 Year
  Sex: Male

DRUGS (2)
  1. TENORMIN [Suspect]
     Dosage: 45 DF, SINGLE
     Route: 048
     Dates: start: 20140413, end: 20140413
  2. PLAVIX [Suspect]
     Dosage: 25 DF, SINGLE
     Route: 048
     Dates: start: 20140413, end: 20140413

REACTIONS (4)
  - Intentional overdose [Unknown]
  - Suicide attempt [Unknown]
  - Somnolence [Recovered/Resolved]
  - Bradycardia [Recovered/Resolved]
